FAERS Safety Report 9428224 (Version 1)
Quarter: 2013Q3

REPORT INFORMATION
  Report Type: Spontaneous
  Country: US (occurrence: US)
  Receive Date: 20130730
  Receipt Date: 20130730
  Transmission Date: 20140515
  Serious: No
  Sender: FDA-Public Use
  Company Number: US-GLAXOSMITHKLINE-A0986995A

PATIENT
  Sex: Female

DRUGS (1)
  1. ZANTAC [Suspect]
     Route: 065

REACTIONS (1)
  - Nausea [Unknown]
